FAERS Safety Report 16175096 (Version 1)
Quarter: 2019Q2

REPORT INFORMATION
  Report Type: Spontaneous
  Country: CN (occurrence: CN)
  Receive Date: 20190409
  Receipt Date: 20190409
  Transmission Date: 20190711
  Serious: Yes (Hospitalization, Other)
  Sender: FDA-Public Use
  Company Number: CN-PFIZER INC-2019144920

PATIENT
  Age: 60 Year
  Sex: Female
  Weight: 50 kg

DRUGS (10)
  1. PHARMORUBICIN [Suspect]
     Active Substance: EPIRUBICIN
     Indication: BREAST CANCER
     Dosage: 100 MG, 1X/DAY
     Route: 041
     Dates: start: 20190112, end: 20190112
  2. PHARMORUBICIN [Suspect]
     Active Substance: EPIRUBICIN
     Indication: HYPERTENSION
  3. SODIUM CHLORIDE. [Concomitant]
     Active Substance: SODIUM CHLORIDE
     Indication: HYPERTENSION
     Dosage: 100 ML, 1X/DAY
     Route: 041
     Dates: start: 20190112, end: 20190112
  4. AI SU [Suspect]
     Active Substance: DOCETAXEL
     Indication: BREAST CANCER
     Dosage: 105 MG, 1X/DAY
     Route: 041
     Dates: start: 20190113, end: 20190113
  5. GLUCOSE [Concomitant]
     Active Substance: DEXTROSE
     Indication: HYPERTENSION
  6. AI SU [Suspect]
     Active Substance: DOCETAXEL
     Indication: HYPERTENSION
  7. GLUCOSE [Concomitant]
     Active Substance: DEXTROSE
     Indication: BREAST CANCER
     Dosage: 250 ML, 1X/DAY
     Route: 041
     Dates: start: 20190113, end: 20190113
  8. SODIUM CHLORIDE. [Concomitant]
     Active Substance: SODIUM CHLORIDE
     Indication: BREAST CANCER
     Dosage: 100 ML, 1X/DAY
     Route: 041
     Dates: start: 20190112, end: 20190112
  9. ENDOXAN [CYCLOPHOSPHAMIDE] [Suspect]
     Active Substance: CYCLOPHOSPHAMIDE
     Indication: HYPERTENSION
  10. ENDOXAN [CYCLOPHOSPHAMIDE] [Suspect]
     Active Substance: CYCLOPHOSPHAMIDE
     Indication: BREAST CANCER
     Dosage: 0.7 G, 1X/DAY
     Route: 041
     Dates: start: 20190112, end: 20190112

REACTIONS (6)
  - Hepatitis chronic active [None]
  - Hepatitis B [None]
  - Decreased appetite [Recovered/Resolved]
  - Hepatic function abnormal [Recovering/Resolving]
  - Vomiting [Recovered/Resolved]
  - Fatigue [Recovered/Resolved]

NARRATIVE: CASE EVENT DATE: 20190212
